FAERS Safety Report 9352060 (Version 1)
Quarter: 2013Q2

REPORT INFORMATION
  Report Type: Spontaneous
  Country: US (occurrence: US)
  Receive Date: 20130617
  Receipt Date: 20130617
  Transmission Date: 20140414
  Serious: No
  Sender: FDA-Public Use
  Company Number: US-009507513-1306USA005998

PATIENT
  Sex: 0

DRUGS (2)
  1. A + D ORIGINAL OINTMENT [Suspect]
     Indication: PRODUCT USED FOR UNKNOWN INDICATION
     Dosage: UNK, UNKNOWN
     Route: 061
  2. A + D ORIGINAL OINTMENT [Suspect]
     Dosage: UNK

REACTIONS (1)
  - Drug label confusion [Unknown]
